FAERS Safety Report 10464256 (Version 1)
Quarter: 2014Q3

REPORT INFORMATION
  Report Type: Spontaneous
  Country: JP (occurrence: JP)
  Receive Date: 20140919
  Receipt Date: 20140919
  Transmission Date: 20150326
  Serious: Yes (Death)
  Sender: FDA-Public Use
  Company Number: JP-MYLANLABS-2014M1004643

PATIENT

DRUGS (2)
  1. RISPERIDONE. [Suspect]
     Active Substance: RISPERIDONE
     Indication: OVERDOSE
     Dosage: 82 MG, ONCE
     Route: 048
     Dates: end: 20120108
  2. RISPERIDONE. [Suspect]
     Active Substance: RISPERIDONE
     Indication: OFF LABEL USE

REACTIONS (4)
  - Sudden death [Fatal]
  - Overdose [Fatal]
  - Toxicity to various agents [Fatal]
  - Intentional overdose [None]
